FAERS Safety Report 4620523-X (Version None)
Quarter: 2005Q1

REPORT INFORMATION
  Report Type: 
  Country: None (occurrence: None)
  Receive Date: 20050328
  Receipt Date: 20050303
  Transmission Date: 20050727
  Serious: Yes (Other)
  Sender: FDA-Public Use
  Company Number: US-GLAXOSMITHKLINE-A0548225A

PATIENT
  Age: 52 Year
  Sex: Female

DRUGS (5)
  1. LAMICTAL [Suspect]
     Indication: BIPOLAR DISORDER
     Route: 048
     Dates: start: 20041209, end: 20050118
  2. GEODON [Suspect]
  3. WELLBUTRIN XL [Concomitant]
     Dates: end: 20050118
  4. ATIVAN [Concomitant]
     Dates: end: 20050118
  5. ZYPREXA [Concomitant]
     Dates: end: 20050118

REACTIONS (9)
  - ABNORMAL BEHAVIOUR [None]
  - AKATHISIA [None]
  - AMNESIA [None]
  - ANXIETY [None]
  - HYPERACUSIS [None]
  - HYPOMANIA [None]
  - STEREOTYPY [None]
  - THINKING ABNORMAL [None]
  - VISUAL DISTURBANCE [None]
